FAERS Safety Report 7708548-9 (Version None)
Quarter: 2011Q3

REPORT INFORMATION
  Report Type: 
  Country: None (occurrence: None)
  Receive Date: 20110824
  Receipt Date: 20110824
  Transmission Date: 20111222
  Serious: Yes (Life-Threatening, Other)
  Sender: FDA-Public Use
  Company Number: None

PATIENT
  Sex: Female
  Weight: 149.687 kg

DRUGS (3)
  1. CHOLECALIFEROL, VITAMIN D3 10,000 UNIT [Suspect]
     Indication: HYPERTENSION
     Dosage: EVERY DAY MOUTH
     Route: 048
     Dates: start: 20100820, end: 20110701
  2. MATZIM LA [Suspect]
     Indication: HYPERTENSION
     Dosage: MATZIM 240 MG DAILY MOUTH
     Route: 048
  3. AMLODIPINE [Suspect]
     Indication: HYPERTENSION
     Dosage: NORVASC EVERY DAY MOUTH
     Route: 048
     Dates: start: 20110301, end: 20110609

REACTIONS (6)
  - HEART RATE DECREASED [None]
  - DYSPNOEA [None]
  - BLOOD PRESSURE FLUCTUATION [None]
  - PALPITATIONS [None]
  - MYALGIA [None]
  - BLOOD PRESSURE INCREASED [None]
